FAERS Safety Report 5387889-7 (Version None)
Quarter: 2007Q3

REPORT INFORMATION
  Report Type: 
  Country: None (occurrence: None)
  Receive Date: 20070716
  Receipt Date: 20060816
  Transmission Date: 20080115
  Serious: No
  Sender: FDA-Public Use
  Company Number: A0616711A

PATIENT
  Age: 21 Year
  Sex: Male

DRUGS (1)
  1. NICORETTE [Suspect]
     Indication: DRUG WITHDRAWAL MAINTENANCE THERAPY
     Dates: start: 20060814, end: 20060814

REACTIONS (2)
  - MALAISE [None]
  - VOMITING [None]
